FAERS Safety Report 9306028 (Version 1)
Quarter: 2013Q2

REPORT INFORMATION
  Report Type: Spontaneous
  Country: IT (occurrence: None)
  Receive Date: 20130520
  Receipt Date: 20130520
  Transmission Date: 20140414
  Serious: Yes (Other)
  Sender: FDA-Public Use
  Company Number: DKLU1091027

PATIENT
  Age: 1 Year
  Sex: Male

DRUGS (4)
  1. COSMEGEN [Suspect]
     Indication: AESTHESIONEUROBLASTOMA
  2. VINCRISTINE (VINCRISTINE) (UNKNOWN) [Suspect]
     Indication: AESTHESIONEUROBLASTOMA
  3. ADRIAMYCIN [Suspect]
     Indication: AESTHESIONEUROBLASTOMA
  4. IFOSFAMIDE [Suspect]
     Indication: AESTHESIONEUROBLASTOMA

REACTIONS (3)
  - Hypothyroidism [None]
  - Headache [None]
  - Attention deficit/hyperactivity disorder [None]
